FAERS Safety Report 5703476-2 (Version None)
Quarter: 2008Q2

REPORT INFORMATION
  Report Type: 
  Country: None (occurrence: None)
  Receive Date: 20080411
  Receipt Date: 20080329
  Transmission Date: 20081010
  Serious: Yes (Death, Other)
  Sender: FDA-Public Use
  Company Number: US-AMGEN-QUU272306

PATIENT
  Sex: Male

DRUGS (1)
  1. ENBREL [Suspect]
     Indication: RHEUMATOID ARTHRITIS
     Route: 058
     Dates: start: 20071208, end: 20080321

REACTIONS (4)
  - ARTHRALGIA [None]
  - DEATH [None]
  - DRUG INEFFECTIVE [None]
  - PULMONARY THROMBOSIS [None]
